FAERS Safety Report 6319826-2 (Version None)
Quarter: 2009Q3

REPORT INFORMATION
  Report Type: 
  Country: None (occurrence: None)
  Receive Date: 20090822
  Receipt Date: 20081007
  Transmission Date: 20100115
  Serious: No
  Sender: FDA-Public Use
  Company Number: US-ABBOTT-08P-163-0480329-00

PATIENT
  Sex: Female
  Weight: 68.1 kg

DRUGS (11)
  1. NIASPAN [Suspect]
     Indication: LOW DENSITY LIPOPROTEIN INCREASED
     Route: 048
     Dates: start: 20081003
  2. ASPIRIN [Concomitant]
     Indication: PROPHYLAXIS
  3. ASPIRIN [Concomitant]
     Indication: FLUSHING
  4. VICODIN [Concomitant]
     Indication: PAIN
  5. OXYCODONE HCL [Concomitant]
     Indication: PAIN
  6. DIOVAN HCT [Concomitant]
     Indication: HYPERTENSION
  7. CLONIDINE [Concomitant]
     Indication: HYPERTENSION
  8. ESOMEPRAZOLE MAGNESIUM [Concomitant]
     Indication: GASTROOESOPHAGEAL REFLUX DISEASE
  9. NIFEDIPINE [Concomitant]
     Indication: HYPERTENSION
  10. METFORMIN [Concomitant]
     Indication: DIABETES MELLITUS
     Dosage: 1.5 TABLETS IN AM, 0.5 TABLET IN PM
  11. ESTRADIOL [Concomitant]
     Indication: HORMONE REPLACEMENT THERAPY

REACTIONS (6)
  - BLOOD GLUCOSE INCREASED [None]
  - CHILLS [None]
  - DIARRHOEA [None]
  - FLUSHING [None]
  - HEADACHE [None]
  - HEART RATE INCREASED [None]
